FAERS Safety Report 10901217 (Version 1)
Quarter: 2015Q1

REPORT INFORMATION
  Report Type: Spontaneous
  Country: HK (occurrence: HK)
  Receive Date: 20150310
  Receipt Date: 20150310
  Transmission Date: 20150721
  Serious: Yes (Death)
  Sender: FDA-Public Use
  Company Number: HK-PFIZER INC-2015077152

PATIENT
  Age: 82 Year
  Sex: Male

DRUGS (5)
  1. CEFTAZIDIME. [Suspect]
     Active Substance: CEFTAZIDIME
     Indication: BURKHOLDERIA PSEUDOMALLEI INFECTION
     Dosage: UNK
     Route: 042
  2. MEROPENEM. [Suspect]
     Active Substance: MEROPENEM
     Indication: BURKHOLDERIA PSEUDOMALLEI INFECTION
  3. DOXYCYCLINE HYCLATE. [Suspect]
     Active Substance: DOXYCYCLINE HYCLATE
     Indication: BURKHOLDERIA PSEUDOMALLEI INFECTION
  4. MINOCYCLINE [Suspect]
     Active Substance: MINOCYCLINE\MINOCYCLINE HYDROCHLORIDE
     Indication: BURKHOLDERIA PSEUDOMALLEI INFECTION
     Route: 042
  5. MOXIFLOXACIN [Suspect]
     Active Substance: MOXIFLOXACIN
     Indication: BURKHOLDERIA PSEUDOMALLEI INFECTION

REACTIONS (1)
  - Drug ineffective [Fatal]
